FAERS Safety Report 21239196 (Version 1)
Quarter: 2022Q3

REPORT INFORMATION
  Report Type: Spontaneous
  Country: US (occurrence: US)
  Receive Date: 20220822
  Receipt Date: 20220822
  Transmission Date: 20221026
  Serious: No
  Sender: FDA-Public Use
  Company Number: US-PFIZER INC-202201070369

PATIENT
  Age: 64 Year
  Sex: Female

DRUGS (1)
  1. PAXLOVID [Suspect]
     Active Substance: NIRMATRELVIR\RITONAVIR
     Indication: COVID-19 treatment
     Dosage: UNK
     Dates: start: 20220816, end: 202208

REACTIONS (7)
  - Vocal cord disorder [Unknown]
  - Stridor [Unknown]
  - Cough [Unknown]
  - Dysphonia [Unknown]
  - Asthenia [Unknown]
  - Pruritus [Unknown]
  - Presyncope [Unknown]

NARRATIVE: CASE EVENT DATE: 20220816
